FAERS Safety Report 7612752-8 (Version None)
Quarter: 2011Q2

REPORT INFORMATION
  Report Type: 
  Country: None (occurrence: None)
  Receive Date: 20110627
  Receipt Date: 20110622
  Transmission Date: 20111010
  Serious: Yes (Other)
  Sender: FDA-Public Use
  Company Number: AECAN201100124

PATIENT
  Age: 55 Year
  Sex: Female

DRUGS (7)
  1. ALBUMIN (HUMAN) [Suspect]
  2. ALBUMIN (HUMAN) [Suspect]
  3. ALBUMIN (HUMAN) [Suspect]
  4. ALBUMIN (HUMAN) [Suspect]
  5. ALBUMIN (HUMAN) [Suspect]
  6. ALBUMIN (HUMAN) [Suspect]
     Indication: PRODUCT USED FOR UNKNOWN INDICATION
     Dosage: IV
     Route: 042
     Dates: start: 20000101, end: 20070101
  7. ALBUMIN (HUMAN) [Suspect]

REACTIONS (2)
  - HEPATITIS C [None]
  - TRANSMISSION OF AN INFECTIOUS AGENT VIA A MEDICINAL PRODUCT [None]
